FAERS Safety Report 5113753-4 (Version None)
Quarter: 2006Q3

REPORT INFORMATION
  Report Type: 
  Country: None (occurrence: None)
  Receive Date: 20060921
  Receipt Date: 20060921
  Transmission Date: 20061208
  Serious: Yes (Hospitalization)
  Sender: FDA-Public Use
  Company Number: None

PATIENT
  Sex: Female
  Weight: 56.9 kg

DRUGS (7)
  1. WARFARIN SODIUM [Suspect]
     Indication: ANTICOAGULANT THERAPY
     Dosage: 2.5 FRI, 5MG TUES,WED,THURS.
  2. WARFARIN SODIUM [Suspect]
     Indication: ATRIAL FIBRILLATION
     Dosage: 2.5 FRI, 5MG TUES,WED,THURS.
  3. WARFARIN SODIUM [Suspect]
     Indication: CARDIOVERSION
     Dosage: 2.5 FRI, 5MG TUES,WED,THURS.
  4. APAP TAB [Concomitant]
  5. AMIODARONE HCL [Concomitant]
  6. CEPHALEXIN [Concomitant]
  7. DIPHENHYDRAMINE HCL [Concomitant]

REACTIONS (3)
  - EPISTAXIS [None]
  - HAEMOPTYSIS [None]
  - INTERNATIONAL NORMALISED RATIO INCREASED [None]
